FAERS Safety Report 10651975 (Version 1)
Quarter: 2014Q4

REPORT INFORMATION
  Report Type: Spontaneous
  Country: US (occurrence: None)
  Receive Date: 20141212
  Receipt Date: 20141212
  Transmission Date: 20150529
  Serious: Yes (Disabling)
  Sender: FDA-Public Use
  Company Number: None

PATIENT
  Age: 48 Year
  Sex: Female
  Weight: 102.51 kg

DRUGS (1)
  1. PIOGLITAZONE 30 MG [Suspect]
     Active Substance: PIOGLITAZONE
     Route: 048
     Dates: start: 20141124, end: 20141205

REACTIONS (2)
  - Brain natriuretic peptide increased [None]
  - Cardiac failure [None]

NARRATIVE: CASE EVENT DATE: 20141205
